FAERS Safety Report 24226107 (Version 3)
Quarter: 2024Q4

REPORT INFORMATION
  Report Type: Spontaneous
  Country: CA (occurrence: CA)
  Receive Date: 20240820
  Receipt Date: 20241217
  Transmission Date: 20250114
  Serious: Yes (Other)
  Sender: CELLTRION
  Company Number: CA-PFIZER INC-PV202400104791

PATIENT

DRUGS (4)
  1. INFLECTRA [Suspect]
     Active Substance: INFLIXIMAB-DYYB
     Indication: Colitis ulcerative
     Dosage: 300 MG, EVERY 8 WEEKS
     Route: 042
     Dates: start: 20240809
  2. INFLECTRA [Suspect]
     Active Substance: INFLIXIMAB-DYYB
     Dosage: 300 MG, Q 8 WEEKS
     Route: 042
     Dates: start: 20241004
  3. INFLECTRA [Suspect]
     Active Substance: INFLIXIMAB-DYYB
     Dosage: 300 MG, Q 8 WEEKS
     Route: 042
     Dates: start: 20241206
  4. ESCITALOPRAM [Concomitant]
     Active Substance: ESCITALOPRAM OXALATE
     Indication: Depression
     Dosage: 20 MG, DAILY
     Route: 048

REACTIONS (2)
  - Tooth disorder [Unknown]
  - Back pain [Unknown]

NARRATIVE: CASE EVENT DATE: 20241001
